FAERS Safety Report 8317380-7 (Version None)
Quarter: 2012Q2

REPORT INFORMATION
  Report Type: 
  Country: None (occurrence: None)
  Receive Date: 20120427
  Receipt Date: 20120416
  Transmission Date: 20120825
  Serious: Yes (Hospitalization)
  Sender: FDA-Public Use
  Company Number: ZA-NOVOPROD-349866

PATIENT
  Sex: Male
  Weight: 3 kg

DRUGS (5)
  1. ZINACEF [Concomitant]
     Dosage: 250 MG, QD
     Route: 064
     Dates: start: 20120418
  2. CLOPAMON [Concomitant]
     Dosage: 30 MG, QD
     Route: 063
     Dates: start: 20120318
  3. CELESTONE                          /00008501/ [Concomitant]
     Dosage: 36 MG, QD
     Route: 064
     Dates: start: 20120318
  4. NOVORAPID FLEXPEN [Suspect]
     Indication: GESTATIONAL DIABETES
     Dosage: 30 IU, QD
     Route: 064
     Dates: start: 20120317
  5. PROTAPHANE FLEXPEN [Suspect]
     Indication: GESTATIONAL DIABETES
     Dosage: 30 IU, QD
     Route: 064
     Dates: start: 20120310

REACTIONS (3)
  - FOETAL EXPOSURE DURING PREGNANCY [None]
  - NEONATAL RESPIRATORY DISTRESS SYNDROME [None]
  - PREMATURE BABY [None]
